FAERS Safety Report 25180080 (Version 1)
Quarter: 2025Q2

REPORT INFORMATION
  Report Type: Spontaneous
  Country: US (occurrence: None)
  Receive Date: 20250409
  Receipt Date: 20250409
  Transmission Date: 20250717
  Serious: Yes (Hospitalization)
  Sender: FDA-CTU
  Company Number: None

PATIENT
  Age: 73 Year
  Sex: Male
  Weight: 87 kg

DRUGS (3)
  1. IBUPROFEN [Suspect]
     Active Substance: IBUPROFEN
     Indication: Pericarditis
     Dosage: FREQUENCY : 3 TIMES A DAY;?
     Route: 048
  2. TRAMADOL HYDROCHLORIDE [Suspect]
     Active Substance: TRAMADOL HYDROCHLORIDE
     Indication: Pain
     Route: 048
  3. ACETAMINOPHEN [Suspect]
     Active Substance: ACETAMINOPHEN

REACTIONS (10)
  - Lower gastrointestinal haemorrhage [None]
  - Acute kidney injury [None]
  - Urinary retention [None]
  - Hypertransaminasaemia [None]
  - Neuropathy peripheral [None]
  - Enterococcal infection [None]
  - Ileus [None]
  - Large intestinal ulcer [None]
  - Gastrointestinal disorder [None]
  - Gastrointestinal haemorrhage [None]

NARRATIVE: CASE EVENT DATE: 20250302
